FAERS Safety Report 7270743-3 (Version None)
Quarter: 2011Q1

REPORT INFORMATION
  Report Type: 
  Country: None (occurrence: None)
  Receive Date: 20110202
  Receipt Date: 20110126
  Transmission Date: 20110831
  Serious: Yes (Death, Life-Threatening, Other)
  Sender: FDA-Public Use
  Company Number: FR-PFIZER INC-FR-WYE-G06423810

PATIENT
  Age: 64 Year
  Sex: Male
  Weight: 77 kg

DRUGS (5)
  1. CYTARABINE [Suspect]
     Indication: ACUTE MYELOID LEUKAEMIA
     Dosage: 384 MG, TOTAL DAILY
     Route: 042
     Dates: start: 20100629, end: 20100707
  2. GEMTUZUMAB OZOGAMICIN [Suspect]
     Indication: ACUTE MYELOID LEUKAEMIA
     Dosage: 5 MG, TOTAL DAILY
     Route: 042
     Dates: start: 20100629, end: 20100705
  3. DAUNORUBICIN [Suspect]
     Indication: ACUTE MYELOID LEUKAEMIA
     Dosage: 115 MG, TOTAL DAILY
     Route: 042
     Dates: start: 20100629, end: 20100701
  4. FORTUM [Concomitant]
     Dosage: 2000 MG, UNK
     Route: 042
     Dates: start: 20100705
  5. VANCOMYCIN [Concomitant]
     Dosage: 300 MG, UNK
     Route: 042
     Dates: start: 20100709, end: 20100713

REACTIONS (7)
  - HEPATOTOXICITY [None]
  - ASCITES [None]
  - COLITIS [None]
  - VENOOCCLUSIVE LIVER DISEASE [None]
  - CYTOLYTIC HEPATITIS [None]
  - HEPATIC FAILURE [None]
  - CROHN'S DISEASE [None]
